FAERS Safety Report 25538460 (Version 5)
Quarter: 2025Q4

REPORT INFORMATION
  Report Type: Spontaneous
  Country: US (occurrence: US)
  Receive Date: 20250710
  Receipt Date: 20251125
  Transmission Date: 20260117
  Serious: No
  Sender: MICRO LABS LIMITED
  Company Number: US-862174955-ML2025-03204

PATIENT
  Age: 69 Year
  Sex: Female
  Weight: 52 kg

DRUGS (3)
  1. BIMATOPROST [Suspect]
     Active Substance: BIMATOPROST
     Indication: Glaucoma
     Dosage: STRENGTH: 0.03%, 25 ML?DOSE: IN EACH EYE
     Route: 047
     Dates: start: 20250614
  2. SYSTANE (HYPROMELLOSE 2910 (4000 MPA.S)) [Concomitant]
     Active Substance: HYPROMELLOSE 2910 (4000 MPA.S)
     Indication: Product used for unknown indication
  3. Flonase Sensimist nasal spray [Concomitant]
     Indication: Product used for unknown indication
     Dosage: FLONASE SENSIMIST NASAL SPRAY USED ONCE DAILY

REACTIONS (5)
  - Periorbital irritation [Recovered/Resolved]
  - Erythema [Recovered/Resolved]
  - Increased dose administered [Unknown]
  - Product container issue [Unknown]
  - Underdose [Unknown]

NARRATIVE: CASE EVENT DATE: 20250601
